FAERS Safety Report 6509213-6 (Version None)
Quarter: 2009Q4

REPORT INFORMATION
  Report Type: 
  Country: None (occurrence: None)
  Receive Date: 20091221
  Receipt Date: 20091207
  Transmission Date: 20100525
  Serious: Yes (Congenital Anomaly)
  Sender: FDA-Public Use
  Company Number: GB-MYLANLABS-2009S1021077

PATIENT

DRUGS (5)
  1. VENLAFAXINE [Suspect]
     Indication: DEPRESSION
     Route: 064
     Dates: start: 20080101
  2. ALBUTEROL [Concomitant]
     Indication: ASTHMA
     Route: 064
  3. SERETIDE [Concomitant]
     Indication: ASTHMA
     Route: 064
  4. SERETIDE [Concomitant]
     Route: 064
     Dates: start: 20070101
  5. VENLAFAXINE [Concomitant]
     Route: 064
     Dates: start: 20080101

REACTIONS (2)
  - DRUG EXPOSURE DURING PREGNANCY [None]
  - ENCEPHALOCELE [None]
